FAERS Safety Report 6502736-5 (Version None)
Quarter: 2009Q4

REPORT INFORMATION
  Report Type: 
  Country: None (occurrence: None)
  Receive Date: 20091217
  Receipt Date: 20091214
  Transmission Date: 20100525
  Serious: Yes (Hospitalization, Other)
  Sender: FDA-Public Use
  Company Number: US-TEVA-218003USA

PATIENT
  Age: 55 Year
  Sex: Female

DRUGS (3)
  1. CITALOPRAM HBR TABLETS, 10 MG, 20 MG, 40 MG [Suspect]
     Indication: DEPRESSION
     Dosage: 7.5MG/KG IN 100ML OF 5%DW
     Route: 042
  2. METHYLTHIONINIUM CHLORIDE [Interacting]
  3. BUPROPION HCL [Concomitant]
     Indication: DEPRESSION

REACTIONS (2)
  - DRUG INTERACTION [None]
  - ENCEPHALOPATHY [None]
